FAERS Safety Report 4886131-0 (Version None)
Quarter: 2006Q1

REPORT INFORMATION
  Report Type: 
  Country: None (occurrence: None)
  Receive Date: 20060117
  Receipt Date: 20060105
  Transmission Date: 20060701
  Serious: Yes (Hospitalization, Other)
  Sender: FDA-Public Use
  Company Number: HQWYE202005JAN06

PATIENT
  Age: 38 Year
  Sex: Female

DRUGS (10)
  1. INIPOMP [Suspect]
     Dosage: 20 MG 1X PER 1 DAY
     Route: 048
     Dates: start: 20051010, end: 20051108
  2. COLCHIMAX                       (COLCHICINE/DICYCLOVERINE HYDROCHLORID [Suspect]
     Dosage: 1 DOSAGE FORM 1X PER 1 DAY
     Route: 048
     Dates: start: 20051010, end: 20051108
  3. SALAZOPYRINE                            (SULFSALAZINE) [Suspect]
     Dosage: 500 MG 1X PER 1 DAY;SEE IMAGE
     Route: 048
     Dates: start: 20051010, end: 20051016
  4. SALAZOPYRINE                            (SULFSALAZINE) [Suspect]
     Dosage: 500 MG 1X PER 1 DAY;SEE IMAGE
     Route: 048
     Dates: start: 20051017, end: 20051023
  5. SALAZOPYRINE                            (SULFSALAZINE) [Suspect]
     Dosage: 500 MG 1X PER 1 DAY;SEE IMAGE
     Route: 048
     Dates: start: 20051024, end: 20051030
  6. SALAZOPYRINE                            (SULFSALAZINE) [Suspect]
     Dosage: 500 MG 1X PER 1 DAY;SEE IMAGE
     Route: 048
     Dates: start: 20051031, end: 20051105
  7. SALAZOPYRINE                            (SULFSALAZINE) [Suspect]
     Dosage: 500 MG 1X PER 1 DAY;SEE IMAGE
     Route: 048
     Dates: start: 20051010, end: 20051105
  8. SALAZOPYRINE                            (SULFSALAZINE) [Suspect]
     Dosage: 500 MG 1X PER 1 DAY;SEE IMAGE
     Route: 048
     Dates: start: 20051010, end: 20051108
  9. VOLTAREN [Suspect]
     Dosage: 150 MG 1X PER 1 DAY
     Route: 048
     Dates: start: 20050501, end: 20051105
  10. ZITHROMAX [Suspect]
     Indication: PHARYNGITIS
     Dosage: ^250 MG^ - FREQUENCY UNSPECIFIED
     Route: 048
     Dates: start: 20051102, end: 20051104

REACTIONS (5)
  - APHTHOUS STOMATITIS [None]
  - DERMATITIS BULLOUS [None]
  - GENITAL RASH [None]
  - PYREXIA [None]
  - RASH PAPULAR [None]
